FAERS Safety Report 8034706 (Version 4)
Quarter: 2014Q1

REPORT INFORMATION
  Report Type: Report from Study
  Country: JP (occurrence: JP)
  Receive Date: 20110714
  Receipt Date: 20140106
  Transmission Date: 20141002
  Serious: Yes (Hospitalization)
  Sender: FDA-Public Use
  Company Number: PHHY2010JP88992

PATIENT
  Age: 75 Year
  Sex: Male

DRUGS (11)
  1. AMN107 [Suspect]
     Indication: CHRONIC MYELOID LEUKAEMIA
     Dosage: 800 MG, DAILY
     Route: 048
     Dates: start: 20100121, end: 20100218
  2. AMN107 [Suspect]
     Dosage: 400 MG, DAILY
     Route: 048
     Dates: start: 20100318, end: 20100428
  3. AMN107 [Suspect]
     Dosage: 400 MG, DAILY
     Route: 048
     Dates: start: 20100610, end: 20100707
  4. AMN107 [Suspect]
     Dosage: 400 MG, DAILY
     Route: 048
  5. PERDIPINE [Concomitant]
     Dosage: 40 MG, UNK
     Route: 048
     Dates: start: 20100121
  6. RIZE [Concomitant]
     Dosage: 15 MG, UNK
     Dates: start: 20100121, end: 20100318
  7. RIZE [Concomitant]
     Dosage: 15 MG, UNK
  8. MAGMITT [Concomitant]
     Dosage: 03 DF, UNK
     Route: 048
     Dates: start: 20100121
  9. MAGMITT [Concomitant]
     Dosage: 03 DF, UNK
     Route: 048
     Dates: end: 20100623
  10. AMARYL [Concomitant]
     Dosage: 01 MG, UNK
     Route: 048
     Dates: start: 20100401
  11. EBASTEL [Concomitant]
     Dosage: 10 MG, UNK
     Route: 048
     Dates: start: 20100318, end: 20100401

REACTIONS (10)
  - Bone marrow failure [Recovered/Resolved]
  - Platelet count decreased [Recovered/Resolved]
  - Cholangitis [Recovered/Resolved]
  - Abdominal pain upper [Recovered/Resolved]
  - Nausea [Recovering/Resolving]
  - Pyrexia [Recovered/Resolved]
  - C-reactive protein increased [Recovered/Resolved]
  - Liver disorder [Recovered/Resolved]
  - Hepatic enzyme increased [Recovered/Resolved]
  - Blood glucose increased [Not Recovered/Not Resolved]
